FAERS Safety Report 4434516-9 (Version None)
Quarter: 2004Q3

REPORT INFORMATION
  Report Type: 
  Country: None (occurrence: None)
  Receive Date: 20040726
  Receipt Date: 20040503
  Transmission Date: 20050211
  Serious: No
  Sender: FDA-Public Use
  Company Number: USA040464838

PATIENT
  Age: 82 Year
  Sex: Female

DRUGS (7)
  1. FORTEO [Suspect]
     Indication: OSTEOPOROSIS
     Dates: start: 20040409
  2. CELEBREX [Concomitant]
  3. TIAZAC [Concomitant]
  4. OSCAL (CALCIUM CARBONAGE) [Concomitant]
  5. NEURONTIN [Concomitant]
  6. LANOXIN [Concomitant]
  7. MECLIZINE [Concomitant]

REACTIONS (2)
  - FEELING ABNORMAL [None]
  - NAUSEA [None]
